FAERS Safety Report 5475515-8 (Version None)
Quarter: 2007Q3

REPORT INFORMATION
  Report Type: 
  Country: None (occurrence: None)
  Receive Date: 20070914
  Receipt Date: 20061022
  Transmission Date: 20080115
  Serious: Yes (Hospitalization)
  Sender: FDA-Public Use
  Company Number: 468311

PATIENT
  Age: 51 Year
  Sex: Female
  Weight: 71.7 kg

DRUGS (7)
  1. ROCALTROL [Suspect]
     Indication: DRUG USE FOR UNKNOWN INDICATION
     Dates: start: 20060715, end: 20061018
  2. CLONIDINE [Concomitant]
  3. ESTRADIOL [Concomitant]
  4. ALLEGRA (FEXOFENADINE HYDROCHLORIDE) [Concomitant]
  5. SYNTHROID [Concomitant]
  6. CALCIUM (CALCIUM) [Concomitant]
  7. VITAMIN D (VITAMIN D NOS) [Concomitant]

REACTIONS (1)
  - HYPERCALCAEMIA [None]
